FAERS Safety Report 17995927 (Version 3)
Quarter: 2021Q1

REPORT INFORMATION
  Report Type: Spontaneous
  Country: US (occurrence: US)
  Receive Date: 20200708
  Receipt Date: 20210201
  Transmission Date: 20210419
  Serious: Yes (Hospitalization, Other)
  Sender: FDA-Public Use
  Company Number: US-ASTRAZENECA-2018SF27092

PATIENT
  Age: 51 Year
  Sex: Male
  Weight: 86.2 kg

DRUGS (51)
  1. TRULICITY [Concomitant]
     Active Substance: DULAGLUTIDE
     Dates: start: 20190905
  2. PREDNISONE. [Concomitant]
     Active Substance: PREDNISONE
     Dates: start: 20180320
  3. BUPROPION. [Concomitant]
     Active Substance: BUPROPION
  4. LISINOPRIL. [Concomitant]
     Active Substance: LISINOPRIL
     Indication: BLOOD CHOLESTEROL ABNORMAL
     Dates: start: 2000, end: 2016
  5. FLOVENT [Concomitant]
     Active Substance: FLUTICASONE PROPIONATE
     Dates: start: 20181029
  6. MELOXICAM. [Concomitant]
     Active Substance: MELOXICAM
     Dates: start: 20181015
  7. CLINDAMYCIN. [Concomitant]
     Active Substance: CLINDAMYCIN
  8. TRAZODONE [Concomitant]
     Active Substance: TRAZODONE HYDROCHLORIDE
  9. BETAMETHASONE. [Concomitant]
     Active Substance: BETAMETHASONE
  10. NEXIUM [Suspect]
     Active Substance: ESOMEPRAZOLE MAGNESIUM
     Indication: GASTROOESOPHAGEAL REFLUX DISEASE
     Dosage: 40 MG CAPSULE
     Route: 048
     Dates: start: 20150108
  11. PANTOPRAZOLE [Suspect]
     Active Substance: PANTOPRAZOLE
     Indication: GASTROOESOPHAGEAL REFLUX DISEASE
     Dosage: GENERIC
     Route: 065
     Dates: start: 20180529
  12. ROSUVASTATIN. [Concomitant]
     Active Substance: ROSUVASTATIN
     Indication: BLOOD PRESSURE ABNORMAL
     Dates: start: 2000, end: 2016
  13. SEROQUEL [Concomitant]
     Active Substance: QUETIAPINE FUMARATE
     Indication: DEPRESSION
     Dates: start: 2010, end: 2020
  14. TUMS [Concomitant]
     Active Substance: CALCIUM CARBONATE
     Dosage: 6 TABLETS DAILY
     Dates: start: 2014, end: 2016
  15. PEPCID [Concomitant]
     Active Substance: FAMOTIDINE
     Dosage: 2 PER DAY
     Dates: start: 2015, end: 2016
  16. AFLURIA NOS [Concomitant]
     Active Substance: INFLUENZA VIRUS VACCINE TRIVALENT TYPE A+B AFLURIA
     Dates: start: 20191129
  17. RESTASIS [Concomitant]
     Active Substance: CYCLOSPORINE
     Dates: start: 20190117
  18. NYSTATIN. [Concomitant]
     Active Substance: NYSTATIN
  19. VITAMIN D3 [Concomitant]
     Active Substance: CHOLECALCIFEROL
  20. BACITRACIN. [Concomitant]
     Active Substance: BACITRACIN
  21. TYLENOL [Concomitant]
     Active Substance: ACETAMINOPHEN
  22. IMITREX [Concomitant]
     Active Substance: SUMATRIPTAN SUCCINATE
  23. PANTOPRAZOLE [Suspect]
     Active Substance: PANTOPRAZOLE
     Indication: GASTROOESOPHAGEAL REFLUX DISEASE
     Dosage: GENERIC
     Route: 065
     Dates: start: 2018
  24. JANUMET [Concomitant]
     Active Substance: METFORMIN HYDROCHLORIDE\SITAGLIPTIN PHOSPHATE
     Dates: start: 20180813
  25. PIOGLITAZONE. [Concomitant]
     Active Substance: PIOGLITAZONE
     Dates: start: 20180813
  26. HYDROCHLOROTHIAZIDE. [Concomitant]
     Active Substance: HYDROCHLOROTHIAZIDE
     Dates: start: 20180320
  27. IBUPROFEN. [Concomitant]
     Active Substance: IBUPROFEN
  28. JANUVIA [Concomitant]
     Active Substance: SITAGLIPTIN PHOSPHATE
  29. NEXIUM [Suspect]
     Active Substance: ESOMEPRAZOLE MAGNESIUM
     Indication: GASTROOESOPHAGEAL REFLUX DISEASE
     Route: 048
     Dates: start: 2011, end: 2018
  30. ALKA?SELTZER [Concomitant]
     Active Substance: ANHYDROUS CITRIC ACID\ASPIRIN\SODIUM BICARBONATE
     Dosage: 2 PACKS A DAY
     Dates: start: 2015, end: 2016
  31. TOPIRAMATE. [Concomitant]
     Active Substance: TOPIRAMATE
     Dates: start: 20191213
  32. NOVOLOG [Concomitant]
     Active Substance: INSULIN ASPART
     Dates: start: 20191213
  33. MONTELUKAST [Concomitant]
     Active Substance: MONTELUKAST SODIUM
     Dates: start: 20190117
  34. GLIPIZIDE. [Concomitant]
     Active Substance: GLIPIZIDE
     Dates: start: 20180320
  35. CICLOPIROX. [Concomitant]
     Active Substance: CICLOPIROX
  36. OXYCODONE/APAP [Concomitant]
     Active Substance: ACETAMINOPHEN\OXYCODONE HYDROCHLORIDE
  37. PROAIR HFA [Concomitant]
     Active Substance: ALBUTEROL SULFATE
  38. METFORMIN [Concomitant]
     Active Substance: METFORMIN HYDROCHLORIDE
     Indication: DIABETES MELLITUS
     Dates: start: 2010, end: 2020
  39. CYCLOBENZAPRINE. [Concomitant]
     Active Substance: CYCLOBENZAPRINE
     Dates: start: 20190816
  40. AZITHROMYCIN ANHYDROUS. [Concomitant]
     Active Substance: AZITHROMYCIN ANHYDROUS
  41. DIPHENHYDRAMINE. [Concomitant]
     Active Substance: DIPHENHYDRAMINE
  42. NEXIUM [Suspect]
     Active Substance: ESOMEPRAZOLE MAGNESIUM
     Indication: GASTROOESOPHAGEAL REFLUX DISEASE
     Route: 048
     Dates: start: 2000, end: 2016
  43. SEROQUEL [Concomitant]
     Active Substance: QUETIAPINE FUMARATE
     Indication: BIPOLAR DISORDER
     Dates: start: 2010, end: 2020
  44. FLONASE [Concomitant]
     Active Substance: FLUTICASONE PROPIONATE
     Dates: start: 20191213
  45. CLOTRIMAZOLE. [Concomitant]
     Active Substance: CLOTRIMAZOLE
  46. KETOTIFEN [Concomitant]
     Active Substance: KETOTIFEN
  47. BACTRIM [Concomitant]
     Active Substance: SULFAMETHOXAZOLE\TRIMETHOPRIM
  48. ACAMPROSATE [Concomitant]
     Active Substance: ACAMPROSATE
     Dates: start: 20181029
  49. BISACODYL. [Concomitant]
     Active Substance: BISACODYL
     Dates: start: 20180320
  50. NALTREXONE [Concomitant]
     Active Substance: NALTREXONE
  51. CEPHALEXIN. [Concomitant]
     Active Substance: CEPHALEXIN

REACTIONS (5)
  - Renal failure [Unknown]
  - Tubulointerstitial nephritis [Unknown]
  - Depression [Not Recovered/Not Resolved]
  - Chronic kidney disease [Unknown]
  - Acute kidney injury [Not Recovered/Not Resolved]
